FAERS Safety Report 17246906 (Version 3)
Quarter: 2020Q4

REPORT INFORMATION
  Report Type: Spontaneous
  Country: US (occurrence: US)
  Receive Date: 20200108
  Receipt Date: 20201207
  Transmission Date: 20210113
  Serious: No
  Sender: FDA-Public Use
  Company Number: US-PFIZER INC-2020003010

PATIENT
  Age: 76 Year
  Sex: Female
  Weight: 106 kg

DRUGS (2)
  1. IBRANCE [Suspect]
     Active Substance: PALBOCICLIB
     Indication: METASTASES TO SPINE
  2. IBRANCE [Suspect]
     Active Substance: PALBOCICLIB
     Indication: BREAST CANCER METASTATIC
     Dosage: 125 MG, 1X/DAY (ONE AT NIGHT)

REACTIONS (7)
  - Blood pressure fluctuation [Unknown]
  - Psoriasis [Unknown]
  - Rash macular [Unknown]
  - Pruritus [Unknown]
  - Dry skin [Unknown]
  - Seasonal allergy [Unknown]
  - Rhinorrhoea [Unknown]
